FAERS Safety Report 24792097 (Version 1)
Quarter: 2024Q4

REPORT INFORMATION
  Report Type: Spontaneous
  Country: GB (occurrence: GB)
  Receive Date: 20241231
  Receipt Date: 20241231
  Transmission Date: 20250115
  Serious: Yes (Death)
  Sender: CHIESI
  Company Number: GB-CHIESI-2024CHF08436

PATIENT
  Sex: Female

DRUGS (1)
  1. FILSUVEZ [Suspect]
     Active Substance: BIRCH TRITERPENES
     Indication: Product used for unknown indication
     Dosage: 1 MILLILITER, PRN
     Route: 061
     Dates: start: 202406

REACTIONS (1)
  - Death [Fatal]
